FAERS Safety Report 6033990-4 (Version None)
Quarter: 2009Q1

REPORT INFORMATION
  Report Type: 
  Country: None (occurrence: None)
  Receive Date: 20090109
  Receipt Date: 20090109
  Transmission Date: 20090719
  Serious: Yes (Hospitalization)
  Sender: FDA-Public Use
  Company Number: None

PATIENT
  Sex: Female
  Weight: 75 kg

DRUGS (3)
  1. CYTARABINE [Suspect]
     Dosage: 60 MG
  2. DAUNORUBICIN HCL [Suspect]
     Dosage: 243 MG
  3. LEUKINE [Suspect]
     Dosage: 500 MCG

REACTIONS (7)
  - FEBRILE NEUTROPENIA [None]
  - LYMPH NODE PAIN [None]
  - OEDEMA GENITAL [None]
  - PAIN [None]
  - SWELLING [None]
  - VAGINAL DISCHARGE [None]
  - VULVOVAGINAL PAIN [None]
